FAERS Safety Report 21125605 (Version 2)
Quarter: 2022Q4

REPORT INFORMATION
  Report Type: Spontaneous
  Country: GR (occurrence: GR)
  Receive Date: 20220725
  Receipt Date: 20221206
  Transmission Date: 20230113
  Serious: Yes (Other)
  Sender: FDA-Public Use
  Company Number: GR-UNI-2022-00090

PATIENT
  Age: 53 Year
  Sex: Female

DRUGS (6)
  1. FENTANYL [Suspect]
     Active Substance: FENTANYL
     Indication: General anaesthesia
     Dosage: UNK
     Route: 065
  2. MORPHINE [Suspect]
     Active Substance: MORPHINE
     Indication: Postoperative analgesia
     Dosage: UNK
     Route: 065
  3. MIDAZOLAM [Suspect]
     Active Substance: MIDAZOLAM
     Indication: General anaesthesia
     Dosage: UNK
     Route: 065
  4. ACETAMINOPHEN [Suspect]
     Active Substance: ACETAMINOPHEN
     Indication: Postoperative analgesia
     Dosage: UNK
     Route: 065
  5. ROCURONIUM [Suspect]
     Active Substance: ROCURONIUM BROMIDE
     Indication: General anaesthesia
     Dosage: UNK
     Route: 065
  6. PROPOFOL [Suspect]
     Active Substance: PROPOFOL
     Indication: General anaesthesia
     Dosage: UNK
     Route: 065

REACTIONS (2)
  - Hypothermia [Recovered/Resolved]
  - Post procedural complication [Recovered/Resolved]
